FAERS Safety Report 5007900-2 (Version None)
Quarter: 2006Q2

REPORT INFORMATION
  Report Type: 
  Country: None (occurrence: None)
  Receive Date: 20060518
  Receipt Date: 20060427
  Transmission Date: 20061013
  Serious: Yes (Hospitalization)
  Sender: FDA-Public Use
  Company Number: FR200601003098

PATIENT
  Age: 65 Year
  Sex: Female

DRUGS (8)
  1. FORTEO [Suspect]
     Indication: OSTEOPOROSIS
     Dosage: 20 UG, DAILY (1/D), SUBCUTANEOUS
     Route: 058
     Dates: start: 20051022, end: 20051219
  2. FORTEO PEN (FORTEO PEN) [Concomitant]
  3. LASIX [Concomitant]
  4. POTASSIUM CHLORIDE [Concomitant]
  5. TARKA - SLOW RELEASE (TRANDOLAPRIL, VERAPAMIL HYDROCHLORIDE) [Concomitant]
  6. NITRIDERM TTS (GLYCERYL TRINITRATE) [Concomitant]
  7. MONO-TILDIEM /FRA/ (DILTIAZEM HYDROCHLORIDE) [Concomitant]
  8. KARDEGIC /FRA/ (ACETYLSALICYLATE LYSINE) [Concomitant]

REACTIONS (2)
  - HYPERHIDROSIS [None]
  - LUNG INFECTION [None]
